FAERS Safety Report 6257808-X (Version None)
Quarter: 2009Q3

REPORT INFORMATION
  Report Type: 
  Country: None (occurrence: None)
  Receive Date: 20090706
  Receipt Date: 20090624
  Transmission Date: 20100115
  Serious: Yes (Disabling)
  Sender: FDA-Public Use
  Company Number: AU-ASTRAZENECA-2009SE02273

PATIENT
  Age: 5 Year
  Sex: Female

DRUGS (5)
  1. NEXIUM SACHETS [Suspect]
     Route: 048
     Dates: start: 20090530, end: 20090601
  2. SINGULAIR [Suspect]
     Indication: ASTHMA
     Route: 048
  3. IRON SUPPLEMENT [Suspect]
     Indication: ANAEMIA
     Route: 048
  4. REDIPRED [Concomitant]
     Indication: ASTHMA
     Route: 048
  5. NEOCATE POWDER [Concomitant]

REACTIONS (2)
  - COELIAC DISEASE [None]
  - DIARRHOEA [None]
